FAERS Safety Report 25905764 (Version 2)
Quarter: 2025Q4

REPORT INFORMATION
  Report Type: Report from Study
  Country: US (occurrence: US)
  Receive Date: 20251010
  Receipt Date: 20251016
  Transmission Date: 20260117
  Serious: Yes (Death, Other)
  Sender: KYOWA
  Company Number: US-KYOWAKIRIN-2025KK019502

PATIENT

DRUGS (5)
  1. BUROSUMAB [Suspect]
     Active Substance: BUROSUMAB
     Indication: Phosphorus metabolism disorder
     Dosage: 20 MG, 1X/4 WEEKS
     Route: 058
     Dates: start: 202412
  2. BUROSUMAB [Suspect]
     Active Substance: BUROSUMAB
     Indication: Mineral metabolism disorder
  3. BUROSUMAB [Suspect]
     Active Substance: BUROSUMAB
     Indication: Mineral metabolism disorder
     Dosage: 30 MG, 1X/4 WEEKS
     Route: 058
     Dates: end: 20251005
  4. BUROSUMAB [Suspect]
     Active Substance: BUROSUMAB
     Indication: Phosphorus metabolism disorder
  5. BUROSUMAB [Suspect]
     Active Substance: BUROSUMAB
     Indication: Hereditary hypophosphataemic rickets
     Dosage: UNK
     Route: 058

REACTIONS (1)
  - Death [Fatal]

NARRATIVE: CASE EVENT DATE: 20251005
